FAERS Safety Report 14442383 (Version 2)
Quarter: 2018Q3

REPORT INFORMATION
  Report Type: Report from Study
  Country: US (occurrence: US)
  Receive Date: 20180125
  Receipt Date: 20180808
  Transmission Date: 20181010
  Serious: No
  Sender: FDA-Public Use
  Company Number: PHEH2018US003240

PATIENT
  Sex: Female
  Weight: 127 kg

DRUGS (1)
  1. COSENTYX [Suspect]
     Active Substance: SECUKINUMAB
     Indication: PSORIASIS
     Dosage: 300 MG, QMO
     Route: 058
     Dates: start: 201508

REACTIONS (3)
  - Conjunctivitis [Unknown]
  - Chronic sinusitis [Unknown]
  - Concomitant disease aggravated [Unknown]
